FAERS Safety Report 15609193 (Version 1)
Quarter: 2018Q4

REPORT INFORMATION
  Report Type: Spontaneous
  Country: SI (occurrence: SI)
  Receive Date: 20181112
  Receipt Date: 20181112
  Transmission Date: 20190205
  Serious: Yes (Hospitalization, Other)
  Sender: FDA-Public Use
  Company Number: SI-PFIZER INC-2018454018

PATIENT
  Age: 30 Year
  Sex: Male

DRUGS (3)
  1. EPLERENONE. [Suspect]
     Active Substance: EPLERENONE
     Indication: CONGESTIVE CARDIOMYOPATHY
     Dosage: 25 MG, 1X/DAY
     Route: 065
  2. PERINDOPRIL [Suspect]
     Active Substance: PERINDOPRIL
     Indication: CONGESTIVE CARDIOMYOPATHY
     Dosage: 8 MG, 1X/DAY
     Route: 065
  3. BISOPROLOL [Suspect]
     Active Substance: BISOPROLOL
     Indication: CONGESTIVE CARDIOMYOPATHY
     Dosage: 5 MG, 1X/DAY
     Route: 065

REACTIONS (6)
  - Cardiac failure chronic [Unknown]
  - Ejection fraction decreased [Unknown]
  - Blood pressure decreased [Unknown]
  - N-terminal prohormone brain natriuretic peptide increased [Unknown]
  - Blood creatinine increased [Unknown]
  - Dyspnoea [Unknown]
